FAERS Safety Report 5321419-0 (Version None)
Quarter: 2007Q2

REPORT INFORMATION
  Report Type: 
  Country: None (occurrence: None)
  Receive Date: 20070510
  Receipt Date: 20070501
  Transmission Date: 20071010
  Serious: Yes (Other)
  Sender: FDA-Public Use
  Company Number: HQWYE434103APR07

PATIENT
  Sex: Male
  Weight: 86.26 kg

DRUGS (2)
  1. EFFEXOR XR [Suspect]
     Indication: DEPRESSION
     Route: 048
     Dates: start: 20040101, end: 20070301
  2. STRATTERA [Concomitant]
     Indication: ATTENTION DEFICIT/HYPERACTIVITY DISORDER
     Dosage: ^60^ TWICE DAILY
     Route: 065
     Dates: start: 20030301, end: 20070301

REACTIONS (4)
  - BLOOD LUTEINISING HORMONE DECREASED [None]
  - BLOOD TESTOSTERONE DECREASED [None]
  - DRUG WITHDRAWAL SYNDROME [None]
  - PITUITARY TUMOUR BENIGN [None]
